FAERS Safety Report 8005118-2 (Version None)
Quarter: 2011Q4

REPORT INFORMATION
  Report Type: 
  Country: None (occurrence: None)
  Receive Date: 20111223
  Receipt Date: 20111213
  Transmission Date: 20120403
  Serious: Yes (Hospitalization, Other)
  Sender: FDA-Public Use
  Company Number: PHHY2011FR109186

PATIENT
  Sex: Male

DRUGS (1)
  1. NEORAL [Suspect]
     Indication: BONE MARROW FAILURE
     Dosage: 60 MG, BID
     Dates: start: 20110819, end: 20110829

REACTIONS (6)
  - CEREBRAL ATROPHY [None]
  - VISION BLURRED [None]
  - PAPILLOEDEMA [None]
  - MENINGITIS ASEPTIC [None]
  - CSF PROTEIN INCREASED [None]
  - VISUAL ACUITY REDUCED [None]
